FAERS Safety Report 10690888 (Version 1)
Quarter: 2015Q1

REPORT INFORMATION
  Report Type: Spontaneous
  Country: US (occurrence: US)
  Receive Date: 20150105
  Receipt Date: 20150105
  Transmission Date: 20150720
  Serious: No
  Sender: FDA-Public Use
  Company Number: US-GLAXOSMITHKLINE-US2014GSK045412

PATIENT
  Sex: Female

DRUGS (4)
  1. FLOVENT [Suspect]
     Active Substance: FLUTICASONE PROPIONATE
  2. NEBULIZED ALBUTEROL [Concomitant]
  3. ANORO ELLIPTA [Concomitant]
     Active Substance: UMECLIDINIUM BROMIDE\VILANTEROL TRIFENATATE
  4. SEREVENT DISKUS [Suspect]
     Active Substance: SALMETEROL XINAFOATE

REACTIONS (1)
  - Drug ineffective [Unknown]
